FAERS Safety Report 5118985-7 (Version None)
Quarter: 2006Q3

REPORT INFORMATION
  Report Type: 
  Country: None (occurrence: None)
  Receive Date: 20060927
  Receipt Date: 20060915
  Transmission Date: 20061208
  Serious: Yes (Hospitalization)
  Sender: FDA-Public Use
  Company Number: 2006110932

PATIENT
  Age: 73 Year
  Sex: Female

DRUGS (5)
  1. ALDACTONE [Suspect]
     Indication: CARDIAC FAILURE
     Dosage: 25 MG (25 MG, FREQUENCY: DAILY INTERVAL: EVERY DAY), ORAL
     Route: 048
     Dates: start: 20040419, end: 20060528
  2. PARAPRES (CANDESARTAN CILEXETIL) [Suspect]
     Indication: CARDIAC FAILURE
     Dosage: 32 MG (10 MG, FREQUENCY: BID INTERVAL: EVERY DAY), ORAL
     Route: 048
     Dates: start: 20040419, end: 20060528
  3. FUROSEMIDE [Concomitant]
  4. DIGOXIN [Concomitant]
  5. DEXNON (LEVOTHYROXINE SODIUM) [Concomitant]

REACTIONS (3)
  - DRUG INTERACTION [None]
  - HYPERKALAEMIA [None]
  - RENAL FAILURE ACUTE [None]
